FAERS Safety Report 19718677 (Version 1)
Quarter: 2021Q3

REPORT INFORMATION
  Report Type: Report from Study
  Country: US (occurrence: US)
  Receive Date: 20210819
  Receipt Date: 20210819
  Transmission Date: 20211014
  Serious: Yes (Other)
  Sender: FDA-Public Use
  Company Number: US-GLAXOSMITHKLINE-US2021AMR172935

PATIENT
  Age: 47 Year
  Sex: Female

DRUGS (1)
  1. BELANTAMAB MAFODOTIN. [Suspect]
     Active Substance: BELANTAMAB MAFODOTIN
     Indication: PLASMA CELL MYELOMA
     Dosage: UNK
     Dates: start: 202103, end: 20210408

REACTIONS (6)
  - Eye irritation [Unknown]
  - Corneal cyst [Not Recovered/Not Resolved]
  - Plasma cell myeloma [Unknown]
  - Vision blurred [Not Recovered/Not Resolved]
  - Dry eye [Unknown]
  - Eye pain [Unknown]
